FAERS Safety Report 16334719 (Version 4)
Quarter: 2019Q3

REPORT INFORMATION
  Report Type: Report from Study
  Country: US (occurrence: US)
  Receive Date: 20190520
  Receipt Date: 20190820
  Transmission Date: 20191004
  Serious: No
  Sender: FDA-Public Use
  Company Number: PHEH2019US021593

PATIENT
  Sex: Male

DRUGS (1)
  1. GILENYA [Suspect]
     Active Substance: FINGOLIMOD HYDROCHLORIDE
     Indication: MULTIPLE SCLEROSIS
     Dosage: 0.5 MG, QD
     Route: 048
     Dates: start: 20190328

REACTIONS (6)
  - Weight decreased [Unknown]
  - Tremor [Unknown]
  - Fatigue [Unknown]
  - Muscular weakness [Unknown]
  - Dysphagia [Unknown]
  - Heart rate decreased [Unknown]
